FAERS Safety Report 10192938 (Version 1)
Quarter: 2014Q2

REPORT INFORMATION
  Report Type: Spontaneous
  Country: FR (occurrence: FR)
  Receive Date: 20140523
  Receipt Date: 20140523
  Transmission Date: 20141212
  Serious: Yes (Other)
  Sender: FDA-Public Use
  Company Number: FR-ABBVIE-14P-056-1241050-00

PATIENT
  Age: 45 Year
  Sex: Male
  Weight: 66 kg

DRUGS (10)
  1. LOPINAVIR/RITONAVIR [Suspect]
     Indication: HIV INFECTION
     Dates: start: 200407
  2. RITONAVIR [Suspect]
     Indication: HIV INFECTION
     Dates: start: 200310
  3. LAMIVUDINE [Suspect]
     Indication: HIV INFECTION
     Dates: start: 200310
  4. ABACAVIR [Suspect]
     Indication: HIV INFECTION
     Dates: start: 200310
  5. DIDANOSINE [Suspect]
     Indication: HIV INFECTION
     Dates: start: 199911
  6. SAQUINAVIR [Suspect]
     Indication: HIV INFECTION
     Dates: start: 200310
  7. STAVUDINE [Suspect]
     Indication: HIV INFECTION
     Dates: start: 199911
  8. NELFINAVIR [Suspect]
     Indication: HIV INFECTION
     Dates: start: 199911
  9. INDINAVIR [Suspect]
     Indication: HIV INFECTION
     Dates: start: 200207
  10. ZIDOVUDINE [Suspect]
     Indication: HIV INFECTION
     Dates: start: 200107

REACTIONS (1)
  - Osteonecrosis [Unknown]
